FAERS Safety Report 12385416 (Version 1)
Quarter: 2016Q2

REPORT INFORMATION
  Report Type: Spontaneous
  Country: AU (occurrence: AU)
  Receive Date: 20160519
  Receipt Date: 20160519
  Transmission Date: 20160815
  Serious: Yes (Death, Other)
  Sender: FDA-Public Use
  Company Number: AU-MYLANLABS-2016M1020557

PATIENT

DRUGS (19)
  1. DIAZEPAM MYLAN GENERICS [Interacting]
     Active Substance: DIAZEPAM
     Indication: ANXIETY
     Dosage: UNK
     Dates: end: 2012
  2. DULOXETINE MYLAN [Interacting]
     Active Substance: DULOXETINE
     Indication: DEPRESSION
     Dosage: 120 MG, QD
     Dates: start: 20130319
  3. OXAZEPAM MYLAN [Interacting]
     Active Substance: OXAZEPAM
     Indication: ANXIETY
     Dosage: 30 TO 60 MG, PRN
     Dates: start: 20130319
  4. LYRICA [Interacting]
     Active Substance: PREGABALIN
     Indication: PAIN MANAGEMENT
     Dosage: UNK
     Dates: start: 2007
  5. AMITRIPTYLINE MYLAN [Suspect]
     Active Substance: AMITRIPTYLINE
     Indication: ANXIETY
     Dosage: 50 MG, NIGHTLY
     Dates: start: 20130402
  6. OXAZEPAM MYLAN [Interacting]
     Active Substance: OXAZEPAM
     Indication: INSOMNIA
     Dosage: UNK
     Dates: end: 2012
  7. LYRICA [Interacting]
     Active Substance: PREGABALIN
     Indication: INTERVERTEBRAL DISC PROTRUSION
     Dosage: 450 MG, QD
     Dates: start: 20130402
  8. ZOPICLONE [Concomitant]
     Active Substance: ZOPICLONE
     Indication: INSOMNIA
     Dosage: 7.5 MG, PRN
     Dates: start: 20130319
  9. PARACETAMOL MYLAN [Interacting]
     Active Substance: ACETAMINOPHEN
     Indication: PRODUCT USED FOR UNKNOWN INDICATION
     Dosage: UNK
  10. AMITRIPTYLINE MYLAN [Suspect]
     Active Substance: AMITRIPTYLINE
     Indication: DEPRESSION
     Dosage: UNK
     Dates: start: 2007
  11. METHADONE [Interacting]
     Active Substance: METHADONE HYDROCHLORIDE
     Dosage: 5 DF, QW
     Dates: start: 201006
  12. METHADONE [Interacting]
     Active Substance: METHADONE HYDROCHLORIDE
     Dosage: 45 MG, QD
     Dates: start: 20130319
  13. METHADONE [Interacting]
     Active Substance: METHADONE HYDROCHLORIDE
     Indication: INSOMNIA
     Dosage: UNK
     Dates: start: 200001
  14. ZOPICLONE [Concomitant]
     Active Substance: ZOPICLONE
     Indication: ANXIETY
     Dosage: 15 MG, NIGHTLY
     Dates: start: 20130402
  15. PARACETAMOL CODEINE [Concomitant]
     Active Substance: ACETAMINOPHEN\CODEINE PHOSPHATE
     Indication: ANALGESIC THERAPY
  16. PARACETAMOL CODEINE [Concomitant]
     Active Substance: ACETAMINOPHEN\CODEINE PHOSPHATE
     Indication: BACK PAIN
     Dosage: UNK
     Dates: start: 20130319
  17. DIAZEPAM MYLAN GENERICS [Interacting]
     Active Substance: DIAZEPAM
     Indication: INSOMNIA
     Dosage: 25 MG, QD
     Dates: start: 20130319
  18. METHADONE [Interacting]
     Active Substance: METHADONE HYDROCHLORIDE
     Indication: ANXIETY
     Dosage: UNK
     Dates: start: 1995, end: 1997
  19. VALIUM [Interacting]
     Active Substance: DIAZEPAM
     Indication: DRUG DEPENDENCE
     Dosage: 25 MG, QD

REACTIONS (8)
  - Tooth infection [Unknown]
  - Drug interaction [Unknown]
  - Hepatitis viral [None]
  - Toxicity to various agents [Fatal]
  - Accidental death [None]
  - Myocardial ischaemia [None]
  - Contraindicated drug administered [Unknown]
  - Overdose [Fatal]

NARRATIVE: CASE EVENT DATE: 20130402
